FAERS Safety Report 21052411 (Version 1)
Quarter: 2022Q3

REPORT INFORMATION
  Report Type: Spontaneous
  Country: US (occurrence: None)
  Receive Date: 20220706
  Receipt Date: 20220706
  Transmission Date: 20221026
  Serious: Yes (Other)
  Sender: FDA-Public Use
  Company Number: None

PATIENT
  Age: 56 Year
  Sex: Female
  Weight: 85.5 kg

DRUGS (5)
  1. DUPIXENT [Suspect]
     Active Substance: DUPILUMAB
     Indication: Dermatitis atopic
     Dosage: OTHER FREQUENCY : EVERY 2 WEEKS;?
     Route: 030
     Dates: start: 20220219, end: 20220529
  2. VITAMIN D [Concomitant]
     Active Substance: VITAMIN D NOS
  3. eczema oil [Concomitant]
  4. prednisone drops [Concomitant]
  5. ADVIL [Suspect]
     Active Substance: IBUPROFEN

REACTIONS (5)
  - Eye pruritus [None]
  - Eye infection [None]
  - Dry eye [None]
  - Oral herpes [None]
  - Arthralgia [None]

NARRATIVE: CASE EVENT DATE: 20220418
